FAERS Safety Report 18994549 (Version 2)
Quarter: 2021Q1

REPORT INFORMATION
  Report Type: Spontaneous
  Country: IT (occurrence: IT)
  Receive Date: 20210310
  Receipt Date: 20210326
  Transmission Date: 20210420
  Serious: Yes (Life-Threatening, Other)
  Sender: FDA-Public Use
  Company Number: IT-SA-2021SA078199

PATIENT
  Age: 20 Year
  Sex: Female

DRUGS (8)
  1. ESCITALOPRAM OXALATE. [Suspect]
     Active Substance: ESCITALOPRAM OXALATE
     Indication: DRUG ABUSE
     Dosage: 1 DF
     Route: 048
  2. QUETIAPINE FUMARATE. [Suspect]
     Active Substance: QUETIAPINE FUMARATE
     Dosage: 28 DF
     Route: 048
  3. QUETIAPINE FUMARATE. [Suspect]
     Active Substance: QUETIAPINE FUMARATE
     Indication: DRUG ABUSE
     Dosage: 150 MG
     Route: 048
  4. DICLOFENAC POTASSIUM. [Suspect]
     Active Substance: DICLOFENAC POTASSIUM
     Indication: DRUG ABUSE
     Dosage: 10 DF
     Route: 048
  5. ZERINODEK 200 MG/30 MG COMPRESSE RIVESTITE CON FILM [Suspect]
     Active Substance: IBUPROFEN\PSEUDOEPHEDRINE HYDROCHLORIDE
     Indication: DRUG ABUSE
     Dosage: 28 DF
     Route: 048
  6. DICLOFENAC SODIUM. [Suspect]
     Active Substance: DICLOFENAC SODIUM
     Indication: DRUG ABUSE
     Dosage: 10 DF
     Route: 048
  7. ZOLPIDEM TARTRATE. [Suspect]
     Active Substance: ZOLPIDEM TARTRATE
     Indication: DRUG ABUSE
     Dosage: 28 DF
     Route: 048
  8. PARACETAMOL [Suspect]
     Active Substance: ACETAMINOPHEN
     Indication: DRUG ABUSE
     Dosage: 20 DF
     Route: 048

REACTIONS (4)
  - Sinus tachycardia [Unknown]
  - Lactic acidosis [Unknown]
  - Drug abuse [Unknown]
  - Loss of consciousness [Unknown]

NARRATIVE: CASE EVENT DATE: 20210115
